FAERS Safety Report 5784037-6 (Version None)
Quarter: 2008Q2

REPORT INFORMATION
  Report Type: 
  Country: None (occurrence: None)
  Receive Date: 20080605
  Receipt Date: 20080331
  Transmission Date: 20081010
  Serious: No
  Sender: FDA-Public Use
  Company Number: A0718213A

PATIENT
  Age: 22 Year
  Sex: Female

DRUGS (4)
  1. ALLI [Suspect]
     Route: 048
     Dates: start: 20080214
  2. OAT BRAN [Concomitant]
  3. SELENIUM SUPPLEMENTS [Concomitant]
  4. HUSK [Concomitant]

REACTIONS (1)
  - GASTROINTESTINAL DISORDER [None]
